FAERS Safety Report 24630869 (Version 1)
Quarter: 2024Q4

REPORT INFORMATION
  Report Type: Spontaneous
  Country: US (occurrence: US)
  Receive Date: 20241118
  Receipt Date: 20241118
  Transmission Date: 20250115
  Serious: No
  Sender: PAREXEL
  Company Number: US-SECURA BIO, INC.-2024-SECUR-US000070

PATIENT

DRUGS (1)
  1. COPIKTRA [Suspect]
     Active Substance: DUVELISIB
     Indication: Adult T-cell lymphoma/leukaemia
     Dosage: 25 MG, 1 CAPSULE, BID
     Route: 048

REACTIONS (1)
  - Product use in unapproved indication [Unknown]
